FAERS Safety Report 12648233 (Version 3)
Quarter: 2018Q1

REPORT INFORMATION
  Report Type: Report from Study
  Country: US (occurrence: US)
  Receive Date: 20160812
  Receipt Date: 20180213
  Transmission Date: 20180508
  Serious: Yes (Hospitalization, Other)
  Sender: FDA-Public Use
  Company Number: US-ARIAD PHARMACEUTICALS, INC-2016US006811

PATIENT
  Sex: Female

DRUGS (3)
  1. PONATINIB [Suspect]
     Active Substance: PONATINIB
     Indication: CHRONIC MYELOID LEUKAEMIA
     Dosage: 45 MG, QD
     Route: 048
     Dates: start: 20160618, end: 20160714
  2. PONATINIB [Suspect]
     Active Substance: PONATINIB
     Dosage: 15 MG, QD
     Route: 048
  3. PONATINIB [Suspect]
     Active Substance: PONATINIB
     Dosage: 15 MG, QD
     Route: 048

REACTIONS (14)
  - Nervousness [Unknown]
  - Vomiting [Not Recovered/Not Resolved]
  - Migraine [Not Recovered/Not Resolved]
  - Abdominal pain [Unknown]
  - Bone pain [Not Recovered/Not Resolved]
  - Thrombocytopenia [Unknown]
  - Back pain [Unknown]
  - Metabolic disorder [Unknown]
  - Anxiety [Unknown]
  - Tumour lysis syndrome [Unknown]
  - Musculoskeletal pain [Unknown]
  - Renal failure [Not Recovered/Not Resolved]
  - Cataract [Unknown]
  - Nausea [Not Recovered/Not Resolved]
